FAERS Safety Report 7833208-3 (Version None)
Quarter: 2011Q4

REPORT INFORMATION
  Report Type: 
  Country: None (occurrence: None)
  Receive Date: 20111024
  Receipt Date: 20111012
  Transmission Date: 20120403
  Serious: Yes (Congenital Anomaly)
  Sender: FDA-Public Use
  Company Number: GB-RANBAXY-2011R1-49495

PATIENT
  Sex: Female
  Weight: 1.87 kg

DRUGS (7)
  1. FLUOXETINE [Suspect]
     Indication: MENTAL DISORDER
     Dosage: UNK
     Route: 064
     Dates: start: 20110117, end: 20110401
  2. CHLORPROMAZINE [Suspect]
     Dosage: UNK
     Route: 064
     Dates: start: 20100501
  3. CYCLIZINE [Concomitant]
     Indication: PRODUCT USED FOR UNKNOWN INDICATION
     Dosage: UNK
     Route: 065
  4. OMEPRAZOLE [Concomitant]
     Indication: PRODUCT USED FOR UNKNOWN INDICATION
     Dosage: UNK
     Route: 065
  5. FLUOXETINE [Suspect]
     Dosage: UNK
     Route: 064
     Dates: start: 20110401
  6. CHLORPROMAZINE [Suspect]
     Indication: MENTAL DISORDER
     Dosage: UNK
     Route: 064
     Dates: end: 20100501
  7. PAROXETINE HCL [Concomitant]
     Indication: PRODUCT USED FOR UNKNOWN INDICATION
     Dosage: UNK
     Route: 065

REACTIONS (1)
  - CLEFT PALATE [None]
